FAERS Safety Report 4465183-6 (Version None)
Quarter: 2004Q3

REPORT INFORMATION
  Report Type: 
  Country: None (occurrence: None)
  Receive Date: 20040928
  Receipt Date: 20040928
  Transmission Date: 20050211
  Serious: No
  Sender: FDA-Public Use
  Company Number: None

PATIENT
  Age: 36 Year
  Sex: Female
  Weight: 70.3075 kg

DRUGS (6)
  1. METOCLOPRAMIDE [Suspect]
     Indication: NAUSEA
     Dosage: 10 MG PO Q 6 HRS/TOTAL 6 DOSES
     Route: 048
     Dates: start: 20040908
  2. METOCLOPRAMIDE [Suspect]
     Indication: NAUSEA
     Dosage: 10 MG PO Q 6 HRS/TOTAL 6 DOSES
     Route: 048
     Dates: start: 20040909
  3. FERROUS SULFATE TAB [Concomitant]
  4. OSCAL 500 + VITAMIN D [Concomitant]
  5. FAMOTIDINE [Concomitant]
  6. NIFEDIPINE [Concomitant]

REACTIONS (3)
  - ANXIETY [None]
  - IRRITABILITY [None]
  - RESTLESSNESS [None]
